FAERS Safety Report 14576701 (Version 1)
Quarter: 2018Q1

REPORT INFORMATION
  Report Type: Spontaneous
  Country: US (occurrence: US)
  Receive Date: 20180227
  Receipt Date: 20180227
  Transmission Date: 20180509
  Serious: No
  Sender: FDA-Public Use
  Company Number: US-009507513-1802USA003631

PATIENT
  Age: 67 Year
  Sex: Male

DRUGS (1)
  1. KEYTRUDA [Suspect]
     Active Substance: PEMBROLIZUMAB
     Indication: METASTATIC MALIGNANT MELANOMA
     Dosage: UNK

REACTIONS (6)
  - Rash papular [Unknown]
  - Erythema [Unknown]
  - Skin hypopigmentation [Unknown]
  - Skin depigmentation [Unknown]
  - Alopecia areata [Unknown]
  - Macule [Unknown]
